FAERS Safety Report 19968183 (Version 1)
Quarter: 2021Q4

REPORT INFORMATION
  Report Type: Spontaneous
  Country: US (occurrence: US)
  Receive Date: 20211015
  Receipt Date: 20211015
  Transmission Date: 20220303
  Serious: No
  Sender: FDA-Public Use
  Company Number: None

PATIENT
  Sex: Female

DRUGS (1)
  1. OTEZLA [Suspect]
     Active Substance: APREMILAST
     Indication: Dermatitis atopic
     Route: 048
     Dates: start: 20210921

REACTIONS (5)
  - Therapy non-responder [None]
  - Headache [None]
  - Fatigue [None]
  - Abdominal pain upper [None]
  - Oropharyngeal pain [None]
